FAERS Safety Report 23976366 (Version 1)
Quarter: 2024Q2

REPORT INFORMATION
  Report Type: Report from Study
  Country: CA (occurrence: CA)
  Receive Date: 20240614
  Receipt Date: 20240614
  Transmission Date: 20240716
  Serious: Yes (Hospitalization)
  Sender: FDA-Public Use
  Company Number: CA-ABBVIE-5800678

PATIENT
  Sex: Male

DRUGS (1)
  1. BOTOX [Suspect]
     Active Substance: ONABOTULINUMTOXINA
     Indication: Torticollis
     Dosage: TIME INTERVAL: AS NECESSARY: FREQUENCY : EVERY THREE MONTH
     Route: 030
     Dates: start: 20230302, end: 20230302

REACTIONS (3)
  - Concussion [Not Recovered/Not Resolved]
  - Seizure [Not Recovered/Not Resolved]
  - Slow speech [Not Recovered/Not Resolved]
